FAERS Safety Report 13983728 (Version 3)
Quarter: 2017Q4

REPORT INFORMATION
  Report Type: Report from Study
  Country: DE (occurrence: DE)
  Receive Date: 20170918
  Receipt Date: 20171009
  Transmission Date: 20180321
  Serious: Yes (Death, Other)
  Sender: FDA-Public Use
  Company Number: PHHY2013DE170578

PATIENT
  Age: 84 Year
  Sex: Female
  Weight: 64 kg

DRUGS (1)
  1. VOTRIENT [Suspect]
     Active Substance: PAZOPANIB HYDROCHLORIDE
     Indication: RENAL CELL CARCINOMA
     Dosage: 400 MG, QD
     Route: 065
     Dates: start: 20130320

REACTIONS (3)
  - Renal cell carcinoma [Fatal]
  - Malignant neoplasm progression [Fatal]
  - Constipation [Recovered/Resolved]

NARRATIVE: CASE EVENT DATE: 20130729
